FAERS Safety Report 9360192 (Version 2)
Quarter: 2014Q1

REPORT INFORMATION
  Report Type: Spontaneous
  Country: SI (occurrence: SI)
  Receive Date: 20130621
  Receipt Date: 20140109
  Transmission Date: 20141002
  Serious: Yes (Other)
  Sender: FDA-Public Use
  Company Number: SI-AMGEN-SVNSP2013043179

PATIENT
  Sex: Male

DRUGS (2)
  1. XGEVA [Suspect]
     Indication: PROSTATE CANCER
     Route: 065
  2. ABIRATERONE [Concomitant]

REACTIONS (2)
  - Apical granuloma [Unknown]
  - Osteonecrosis of jaw [Unknown]
